FAERS Safety Report 7728916-9 (Version None)
Quarter: 2011Q3

REPORT INFORMATION
  Report Type: 
  Country: None (occurrence: None)
  Receive Date: 20110906
  Receipt Date: 20110824
  Transmission Date: 20111222
  Serious: Yes (Other)
  Sender: FDA-Public Use
  Company Number: US-CELGENEUS-163-21880-11083049

PATIENT
  Sex: Female

DRUGS (9)
  1. REVLIMID [Suspect]
     Indication: MULTIPLE MYELOMA
     Dosage: 10 MILLIGRAM
     Route: 048
     Dates: start: 20110129
  2. CALCIUM CARBONATE [Concomitant]
     Route: 065
  3. DIAVAN [Concomitant]
     Route: 065
  4. ASPIRIN [Concomitant]
     Route: 065
  5. COQ10 [Concomitant]
     Route: 065
  6. REVLIMID [Suspect]
     Dosage: 5 MILLIGRAM
     Route: 048
     Dates: start: 20110501
  7. MULTI-VITAMINS [Suspect]
     Route: 065
  8. FISH OIL [Suspect]
     Route: 065
  9. FOSAMAX [Suspect]
     Route: 065

REACTIONS (2)
  - OSTEONECROSIS [None]
  - ARTHRITIS [None]
